FAERS Safety Report 15230964 (Version 1)
Quarter: 2018Q3

REPORT INFORMATION
  Report Type: Spontaneous
  Country: US (occurrence: US)
  Receive Date: 20180802
  Receipt Date: 20180802
  Transmission Date: 20181010
  Serious: Yes (Other)
  Sender: FDA-Public Use
  Company Number: US-ACCORD-063220

PATIENT
  Age: 66 Year
  Sex: Female

DRUGS (16)
  1. NEULASTA [Concomitant]
     Active Substance: PEGFILGRASTIM
     Dosage: STRENGTH: 6 MG/0.6 ML SUBCUTANEOUS SYRINGE
     Route: 058
  2. TEMAZEPAM. [Concomitant]
     Active Substance: TEMAZEPAM
     Dosage: STRENGTH: 15 MG
  3. ALBUTEROL SULFATE HFA [Concomitant]
     Active Substance: ALBUTEROL SULFATE
     Dosage: STRENGTH: 90 MCG/ACTUATION AEROSOL INHALER
  4. BENADRYL [Concomitant]
     Active Substance: DIPHENHYDRAMINE HYDROCHLORIDE
     Route: 042
  5. DOCETAXEL ACCORD [Suspect]
     Active Substance: DOCETAXEL
     Indication: BREAST CANCER
     Dosage: EVERY 3 WEEKS
     Route: 042
     Dates: start: 20140320, end: 20140701
  6. EMEND [Concomitant]
     Active Substance: APREPITANT
     Route: 042
  7. ALOXI [Concomitant]
     Active Substance: PALONOSETRON HYDROCHLORIDE
     Route: 042
  8. DECADRON [Concomitant]
     Active Substance: DEXAMETHASONE
     Route: 042
  9. CYTOXAN [Suspect]
     Active Substance: CYCLOPHOSPHAMIDE
     Indication: BREAST CANCER
     Dosage: EVERY 3 WEEKS
     Route: 042
     Dates: start: 20140320, end: 20140701
  10. DEXAMETHASONE. [Concomitant]
     Active Substance: DEXAMETHASONE
     Dosage: STRENGTH: 4 MG
  11. LISINOPRIL. [Concomitant]
     Active Substance: LISINOPRIL
     Dosage: STRENGTH: 20 MG
  12. DOXORUBICIN [Suspect]
     Active Substance: DOXORUBICIN
     Indication: BREAST CANCER
     Route: 042
     Dates: start: 20140320, end: 20140701
  13. NYSTATIN/NYSTATIN/LIPOSOME [Concomitant]
     Dosage: STRENGTH: 100000 UNIT/ML
     Route: 048
  14. EMLA [Concomitant]
     Active Substance: LIDOCAINE\PRILOCAINE
     Dosage: STRENGTH: 2.5%?2.5% TOPICAL CREAM
     Route: 061
  15. ZITHROMAX [Concomitant]
     Active Substance: AZITHROMYCIN DIHYDRATE
     Dosage: STRENGTH: 250 MG
  16. ZANTAC [Concomitant]
     Active Substance: RANITIDINE HYDROCHLORIDE
     Route: 042

REACTIONS (1)
  - Alopecia [Not Recovered/Not Resolved]

NARRATIVE: CASE EVENT DATE: 20140501
